FAERS Safety Report 7419029-4 (Version None)
Quarter: 2011Q2

REPORT INFORMATION
  Report Type: 
  Country: None (occurrence: None)
  Receive Date: 20110406
  Receipt Date: 20110331
  Transmission Date: 20111010
  Serious: Yes (Other)
  Sender: FDA-Public Use
  Company Number: CAP11000018

PATIENT
  Age: 59 Year
  Sex: Female
  Weight: 88 kg

DRUGS (5)
  1. ACTONEL [Suspect]
     Indication: OSTEOPOROSIS
     Dosage: 35 MG ONCE WEEKLY, ORAL
     Route: 048
     Dates: start: 20081025, end: 20091126
  2. CRESTOR [Concomitant]
  3. LISINOPRIL [Concomitant]
  4. CELEBREX [Concomitant]
  5. DICETEL /0050510/ (PINAVERIUM) [Concomitant]

REACTIONS (2)
  - ARTHRALGIA [None]
  - OSTEONECROSIS [None]
